FAERS Safety Report 11141840 (Version 2)
Quarter: 2015Q2

REPORT INFORMATION
  Report Type: Spontaneous
  Country: CA (occurrence: CA)
  Receive Date: 20150527
  Receipt Date: 20150604
  Transmission Date: 20150821
  Serious: Yes (Death, Other)
  Sender: FDA-Public Use
  Company Number: CA-CELGENE-CAN-2015054702

PATIENT
  Age: 76 Year
  Sex: Male

DRUGS (2)
  1. VIDAZA [Suspect]
     Active Substance: AZACITIDINE
     Indication: ACUTE MYELOID LEUKAEMIA
     Route: 065
     Dates: start: 201405
  2. VIDAZA [Suspect]
     Active Substance: AZACITIDINE
     Indication: MYELODYSPLASTIC SYNDROME

REACTIONS (2)
  - Full blood count decreased [Unknown]
  - Death [Fatal]

NARRATIVE: CASE EVENT DATE: 201502
